FAERS Safety Report 8520733-5 (Version None)
Quarter: 2012Q3

REPORT INFORMATION
  Report Type: 
  Country: None (occurrence: None)
  Receive Date: 20120719
  Receipt Date: 20120711
  Transmission Date: 20120928
  Serious: Yes (Hospitalization)
  Sender: FDA-Public Use
  Company Number: IT-PFIZER INC-2012152205

PATIENT
  Age: 90 Year
  Sex: Male

DRUGS (1)
  1. CORDARONE [Suspect]
     Indication: ACUTE CORONARY SYNDROME
     Dosage: 200 MG, DAILY
     Route: 048
     Dates: start: 20120601, end: 20120606

REACTIONS (3)
  - TOXICITY TO VARIOUS AGENTS [None]
  - ASTHENIA [None]
  - BRADYCARDIA [None]
